FAERS Safety Report 18332451 (Version 1)
Quarter: 2020Q3

REPORT INFORMATION
  Report Type: Other
  Country: PT (occurrence: PT)
  Receive Date: 20200930
  Receipt Date: 20200930
  Transmission Date: 20201103
  Serious: Yes (Life-Threatening, Hospitalization, Disabling)
  Sender: FDA-Public Use
  Company Number: PT-NOSTRUM LABORATORIES, INC.-2092330

PATIENT
  Age: 65 Year
  Sex: Female

DRUGS (2)
  1. METFORMIN HYDROCHLORIDE EXTENDED?RELEASE [Suspect]
     Active Substance: METFORMIN HYDROCHLORIDE
     Indication: TYPE 2 DIABETES MELLITUS
     Route: 048
  2. LISINOPRIL AND HYDROCHLOROTHIAZIDE [Concomitant]
     Active Substance: HYDROCHLOROTHIAZIDE\LISINOPRIL
     Route: 048

REACTIONS (7)
  - Cardiac arrest [Recovered/Resolved]
  - Acute kidney injury [Recovered/Resolved with Sequelae]
  - Hypovolaemic shock [Recovered/Resolved]
  - Rhabdomyolysis [Recovered/Resolved]
  - Hyperkalaemia [Recovered/Resolved]
  - Lactic acidosis [Recovered/Resolved]
  - Liver function test abnormal [Recovered/Resolved]
